FAERS Safety Report 8620863-3 (Version None)
Quarter: 2012Q3

REPORT INFORMATION
  Report Type: 
  Country: None (occurrence: None)
  Receive Date: 20120824
  Receipt Date: 20120809
  Transmission Date: 20120928
  Serious: Yes (Other)
  Sender: FDA-Public Use
  Company Number: JP-VERTEX PHARMACEUTICAL INC.-AE-2012-010097

PATIENT
  Age: 63 Year
  Sex: Female

DRUGS (14)
  1. OLMESARTAN MEDOXOMIL [Concomitant]
     Route: 048
  2. ZOLPIDEM [Concomitant]
     Route: 048
  3. LANSOPRAZOLE [Concomitant]
     Route: 048
  4. SIGMART [Concomitant]
     Route: 048
  5. AMLODIPINE BESYLATE [Concomitant]
     Route: 048
  6. VX-950 [Suspect]
     Indication: HEPATITIS C
     Dosage: 1500 MG, UNK
     Route: 048
     Dates: start: 20120508, end: 20120525
  7. PLAVIX [Concomitant]
     Route: 048
     Dates: end: 20120523
  8. SELBEX [Concomitant]
     Route: 048
  9. DEPAS [Concomitant]
     Route: 048
  10. REBETOL [Concomitant]
     Indication: HEPATITIS C
     Dosage: 400 MG, QD
     Route: 048
     Dates: start: 20120508, end: 20120526
  11. PEGINTERFERON ALFA-2B [Concomitant]
     Indication: HEPATITIS C
     Dosage: 1.5 A?G/KG, UNK
     Route: 058
     Dates: start: 20120508, end: 20120522
  12. CRESTOR [Concomitant]
     Route: 048
  13. MUCOSTA [Concomitant]
     Route: 048
  14. DESYREL [Concomitant]
     Route: 048

REACTIONS (2)
  - RENAL FAILURE [None]
  - GASTROINTESTINAL HAEMORRHAGE [None]
